FAERS Safety Report 5061517-2 (Version None)
Quarter: 2006Q3

REPORT INFORMATION
  Report Type: 
  Country: None (occurrence: None)
  Receive Date: 20060721
  Receipt Date: 20060705
  Transmission Date: 20061208
  Serious: Yes (Other)
  Sender: FDA-Public Use
  Company Number: US200607000718

PATIENT
  Age: 60 Year
  Sex: Female

DRUGS (2)
  1. HUMALOG PEN [Suspect]
     Indication: DIABETES MELLITUS
     Dates: start: 20030101
  2. HUMALOG PEN (HUMALOG PEN) [Concomitant]

REACTIONS (4)
  - ANKLE FRACTURE [None]
  - DEHYDRATION [None]
  - LOSS OF CONSCIOUSNESS [None]
  - TEMPERATURE INTOLERANCE [None]
